FAERS Safety Report 10502339 (Version 1)
Quarter: 2014Q4

REPORT INFORMATION
  Report Type: Spontaneous
  Country: IT (occurrence: IT)
  Receive Date: 20141007
  Receipt Date: 20141007
  Transmission Date: 20150528
  Serious: Yes (Other)
  Sender: FDA-Public Use
  Company Number: IT-TEVA-513368ISR

PATIENT
  Age: 56 Year
  Sex: Female

DRUGS (7)
  1. PAROXETINE [Suspect]
     Active Substance: PAROXETINE\PAROXETINE HYDROCHLORIDE
     Indication: INTENTIONAL SELF-INJURY
     Dosage: 40 MG TOTAL
     Route: 048
     Dates: start: 20140929, end: 20140929
  2. FLUNOX - 30 MG CAPSULE RIGIDE - TEOFARMA S.R.L. [Suspect]
     Active Substance: FLURAZEPAM HYDROCHLORIDE
     Indication: INTENTIONAL SELF-INJURY
     Dosage: 3 DF TOTAL
     Route: 048
     Dates: start: 20140929, end: 20140929
  3. ALDACTONE [Suspect]
     Active Substance: SPIRONOLACTONE
     Indication: INTENTIONAL SELF-INJURY
     Dosage: 6 DF TOTAL
     Route: 048
     Dates: start: 20140929, end: 20140929
  4. CORLENTOR - 5 MG COMPRESSA RIVESTITA CON FILM [Suspect]
     Active Substance: IVABRADINE HYDROCHLORIDE
     Indication: INTENTIONAL SELF-INJURY
     Dosage: 8 DF TOTAL
     Route: 048
     Dates: start: 20140929, end: 20140929
  5. TAVOR [Suspect]
     Active Substance: LORAZEPAM
     Indication: INTENTIONAL SELF-INJURY
     Dosage: 1 DF TOTAL
     Route: 048
     Dates: start: 20140929, end: 20140929
  6. METFORMIN [Suspect]
     Active Substance: METFORMIN HYDROCHLORIDE
     Indication: INTENTIONAL SELF-INJURY
     Dosage: 500 MG TOTAL
     Route: 048
     Dates: start: 20140929, end: 20140929
  7. LASIX [Suspect]
     Active Substance: FUROSEMIDE
     Indication: INTENTIONAL SELF-INJURY
     Dosage: 2 DF TOTAL
     Route: 048
     Dates: start: 20140929, end: 20140929

REACTIONS (4)
  - Bradyphrenia [Recovering/Resolving]
  - Intentional self-injury [None]
  - Intentional overdose [None]
  - Bradykinesia [Recovering/Resolving]

NARRATIVE: CASE EVENT DATE: 20140929
